FAERS Safety Report 26099253 (Version 1)
Quarter: 2025Q4

REPORT INFORMATION
  Report Type: Spontaneous
  Country: EU (occurrence: EU)
  Receive Date: 20251128
  Receipt Date: 20251128
  Transmission Date: 20260118
  Serious: Yes (Death, Hospitalization)
  Sender: JOHNSON AND JOHNSON
  Company Number: None

PATIENT
  Age: 82 Year
  Sex: Male
  Weight: 88 kg

DRUGS (20)
  1. DARZALEX [Suspect]
     Active Substance: DARATUMUMAB
     Indication: Plasma cell myeloma
     Route: 058
     Dates: start: 20250923
  2. ENOXAPARIN SODIUM [Concomitant]
     Active Substance: ENOXAPARIN SODIUM
     Indication: Product used for unknown indication
     Route: 058
     Dates: start: 20250930, end: 20251007
  3. Amlopin 10 mg [Concomitant]
     Indication: Product used for unknown indication
     Route: 048
     Dates: start: 20250930, end: 20251007
  4. CARVEDILOL [Concomitant]
     Active Substance: CARVEDILOL
     Indication: Product used for unknown indication
     Route: 048
     Dates: start: 20250930, end: 20251007
  5. DEXAMETHASONE [Concomitant]
     Active Substance: DEXAMETHASONE
     Indication: Product used for unknown indication
     Route: 042
     Dates: start: 20250930, end: 20251007
  6. PANTOPRAZOLE SODIUM [Concomitant]
     Active Substance: PANTOPRAZOLE SODIUM
     Indication: Product used for unknown indication
     Route: 042
     Dates: start: 20250930, end: 20251007
  7. INSULIN HUMAN [Concomitant]
     Active Substance: INSULIN HUMAN
     Indication: Product used for unknown indication
     Route: 058
     Dates: start: 20250929, end: 20251003
  8. INSULIN HUMAN [Concomitant]
     Active Substance: INSULIN HUMAN
     Indication: Product used for unknown indication
     Route: 058
     Dates: start: 20251002, end: 20251007
  9. FUROSEMIDUM POLPHARMA [Concomitant]
     Indication: Product used for unknown indication
     Route: 048
     Dates: start: 20251005, end: 20251007
  10. CALCIUM CARBONATE [Concomitant]
     Active Substance: CALCIUM CARBONATE
     Indication: Product used for unknown indication
     Route: 048
     Dates: start: 20251005, end: 20251007
  11. LENALIDOMIDE [Concomitant]
     Active Substance: LENALIDOMIDE
     Indication: Product used for unknown indication
     Route: 048
     Dates: start: 20251005, end: 20251007
  12. DALACIN C 300MG [Concomitant]
     Indication: Product used for unknown indication
     Route: 048
     Dates: start: 20251006, end: 20251006
  13. DALACIN C 300MG [Concomitant]
     Route: 048
     Dates: start: 20251007, end: 20251007
  14. TRAMADOL [Concomitant]
     Active Substance: TRAMADOL
     Indication: Product used for unknown indication
     Route: 042
     Dates: start: 20250929, end: 20250929
  15. TRAMADOL [Concomitant]
     Active Substance: TRAMADOL
     Route: 042
     Dates: start: 20250930, end: 20250930
  16. TRAMADOL [Concomitant]
     Active Substance: TRAMADOL
     Route: 042
     Dates: start: 20250930, end: 20250930
  17. ESTAZOLAM [Concomitant]
     Active Substance: ESTAZOLAM
     Indication: Product used for unknown indication
     Route: 048
     Dates: start: 20250929, end: 20251005
  18. KETONAL [Concomitant]
     Indication: Product used for unknown indication
     Route: 042
     Dates: start: 20251006, end: 20251007
  19. RASTAMOL [Concomitant]
     Indication: Product used for unknown indication
     Route: 042
     Dates: start: 20250929, end: 20251007
  20. INSULIN HUMAN [Concomitant]
     Active Substance: INSULIN HUMAN
     Indication: Product used for unknown indication
     Route: 058
     Dates: start: 20251002, end: 20251007

REACTIONS (3)
  - Lymphopenia [Fatal]
  - Thrombocytopenia [Fatal]
  - Neutropenia [Fatal]

NARRATIVE: CASE EVENT DATE: 20251002
